FAERS Safety Report 5837171-6 (Version None)
Quarter: 2008Q3

REPORT INFORMATION
  Report Type: 
  Country: None (occurrence: None)
  Receive Date: 20080807
  Receipt Date: 20080730
  Transmission Date: 20090109
  Serious: Yes (Death, Hospitalization)
  Sender: FDA-Public Use
  Company Number: KR-ROCHE-559329

PATIENT
  Sex: Male
  Weight: 48 kg

DRUGS (15)
  1. CAPECITABINE [Suspect]
     Indication: GASTRIC CANCER
     Dosage: UNITS REPORTED AS: 1500 MG. DRUG THERAPY TEMPORARILY INTERRUPTED. FREQUENCY REPORTED: D1-14Q3W
     Route: 048
     Dates: start: 20080402, end: 20080415
  2. CAPECITABINE [Suspect]
     Dosage: UNITS: 1150 MG. GIVEN ON DAY 1-14 OF EVERY 3-WEEK-CYCLE. LAST DOSE PRIOR TO SAE 17 JUN 2008
     Route: 048
     Dates: end: 20080721
  3. BLINDED BEVACIZUMAB [Suspect]
     Indication: GASTRIC CANCER
     Dosage: LAST DOSE PRIOR TO SAE: 03 JUN 2008 FORM REPORTED AS: INFUSION.
     Route: 042
     Dates: start: 20080402, end: 20080721
  4. CISPLATIN [Suspect]
     Indication: GASTRIC CANCER
     Dosage: UNITS:126 MG,FORM:INFUSION, LAST DOSE PRIOR TO SAE: 03 JUN 2008
     Route: 042
     Dates: start: 20080402, end: 20080721
  5. HEMOCONTIN [Concomitant]
     Dates: start: 20080326
  6. CAROL-F [Concomitant]
     Dosage: REPORTED AS CAROL-F (IBUPROFEN 200 MG, ARGINI).
     Dates: start: 20080316
  7. ITOPRIDE HCL [Concomitant]
     Dates: start: 20080325
  8. MAGNESIUM OXIDE [Concomitant]
     Dates: start: 20080325
  9. MEDILAC DS [Concomitant]
     Dates: start: 20080325
  10. Q-ZYME [Concomitant]
     Dates: start: 20080325
  11. SULTAMICILLIN TOSYLATE [Concomitant]
     Dates: start: 20080326, end: 20080403
  12. METOCLOPRAMIDE [Concomitant]
     Dosage: REPORTED AS METOCLAPRAMIDE HCL.
     Dates: start: 20080425
  13. CIMETIDINE [Concomitant]
     Dates: start: 20080425
  14. DIAZEPAM [Concomitant]
     Dates: start: 20080425
  15. MEGESTROL ACETATE [Concomitant]
     Dates: start: 20080425

REACTIONS (3)
  - INFECTION [None]
  - NEUTROPENIA [None]
  - PNEUMONIA [None]
